FAERS Safety Report 6862459-X (Version None)
Quarter: 2010Q3

REPORT INFORMATION
  Report Type: 
  Country: None (occurrence: None)
  Receive Date: 20100721
  Receipt Date: 20100712
  Transmission Date: 20110219
  Serious: Yes (Hospitalization)
  Sender: FDA-Public Use
  Company Number: JP-ASTRAZENECA-2010SE22301

PATIENT
  Age: 68 Year
  Sex: Male
  Weight: 69 kg

DRUGS (10)
  1. ECARD HD [Suspect]
     Indication: HYPERTENSION
     Dosage: 1 DF DAILY
     Route: 048
     Dates: start: 20100426, end: 20100507
  2. TAKEPRON [Suspect]
     Indication: PROPHYLAXIS
     Route: 048
     Dates: start: 20081201, end: 20100507
  3. LIPITOR [Suspect]
     Indication: THROMBOSIS PROPHYLAXIS
     Route: 048
     Dates: start: 20081201, end: 20100507
  4. BUFFERIN [Suspect]
     Indication: THROMBOSIS PROPHYLAXIS
     Route: 048
     Dates: start: 20081201, end: 20100507
  5. LASIX [Suspect]
     Route: 048
     Dates: start: 20091019, end: 20100507
  6. ARTIST [Suspect]
     Indication: MYOCARDIAL INFARCTION
     Route: 048
     Dates: start: 20081201
  7. EPADEL [Suspect]
     Indication: THROMBOSIS PROPHYLAXIS
     Route: 048
     Dates: start: 20081201, end: 20100507
  8. ALDACTONE [Suspect]
     Route: 048
     Dates: start: 20081201, end: 20100507
  9. MICARDIS [Suspect]
     Indication: HYPERTENSION
     Route: 048
     Dates: start: 20081201, end: 20100425
  10. FRANDOL TAPE [Concomitant]
     Indication: MYOCARDIAL INFARCTION
     Route: 062
     Dates: start: 20081201, end: 20100507

REACTIONS (1)
  - LIVER DISORDER [None]
